FAERS Safety Report 9361117 (Version 2)
Quarter: 2013Q3

REPORT INFORMATION
  Report Type: Spontaneous
  Country: AU (occurrence: AU)
  Receive Date: 20130621
  Receipt Date: 20130716
  Transmission Date: 20140515
  Serious: Yes (Other)
  Sender: FDA-Public Use
  Company Number: AU-PFIZER INC-2013185082

PATIENT
  Sex: Male

DRUGS (1)
  1. DILANTIN [Suspect]
     Dosage: 200MG IN THE MORNING, 100MG AT NIGHT
     Dates: start: 1986

REACTIONS (2)
  - Convulsion [Unknown]
  - Syncope [Unknown]
